FAERS Safety Report 4906454-6 (Version None)
Quarter: 2006Q1

REPORT INFORMATION
  Report Type: 
  Country: None (occurrence: None)
  Receive Date: 20060206
  Receipt Date: 20060119
  Transmission Date: 20060701
  Serious: Yes (Hospitalization)
  Sender: FDA-Public Use
  Company Number: 8014172

PATIENT
  Age: 76 Year
  Sex: Male

DRUGS (5)
  1. KEPPRA [Suspect]
     Dosage: 2000 MG / D PO
     Route: 048
     Dates: start: 20051130, end: 20051211
  2. DEPAKENE [Suspect]
     Dosage: 2 DF /D IV
     Route: 042
     Dates: start: 20051101, end: 20051130
  3. EQUANIL [Suspect]
     Dosage: 400 MG / D PO
     Route: 048
     Dates: start: 20051123, end: 20051209
  4. ORGARAN [Suspect]
     Dosage: 1 DF /D SC
     Route: 058
     Dates: start: 20051101, end: 20051211
  5. CLINDAMYCIN HCL [Suspect]
     Dosage: PO
     Route: 048
     Dates: start: 20051024, end: 20051211

REACTIONS (2)
  - ANTIBODY TEST POSITIVE [None]
  - THROMBOCYTOPENIA [None]
